FAERS Safety Report 24707349 (Version 1)
Quarter: 2024Q4

REPORT INFORMATION
  Report Type: Spontaneous
  Country: US (occurrence: None)
  Receive Date: 20241206
  Receipt Date: 20241206
  Transmission Date: 20250114
  Serious: Yes (Hospitalization)
  Sender: Public
  Company Number: None

PATIENT
  Sex: Female

DRUGS (3)
  1. LENALIDOMIDE [Suspect]
     Active Substance: LENALIDOMIDE
     Indication: Plasma cell myeloma
     Dosage: OTHER FREQUENCY : 1 TIME A DAY FOR 14 DAYS ON THEN 14 DAYS OFF;?
     Route: 048
     Dates: start: 202409
  2. NINLARO [Concomitant]
     Active Substance: IXAZOMIB CITRATE
  3. KEFLEX [Concomitant]
     Active Substance: CEPHALEXIN

REACTIONS (2)
  - Infection [None]
  - Cellulitis [None]
